FAERS Safety Report 8800301 (Version 3)
Quarter: 2015Q1

REPORT INFORMATION
  Report Type: Report from Study
  Country: US (occurrence: US)
  Receive Date: 20120921
  Receipt Date: 20150204
  Transmission Date: 20150721
  Serious: Yes (Death)
  Sender: FDA-Public Use
  Company Number: US-ROCHE-1126513

PATIENT
  Age: 45 Year
  Sex: Male

DRUGS (29)
  1. ROSUVASTATIN CALCIUM. [Concomitant]
     Active Substance: ROSUVASTATIN CALCIUM
     Route: 065
     Dates: start: 20071017
  2. HYDROCORTISONE. [Concomitant]
     Active Substance: HYDROCORTISONE
     Route: 065
     Dates: start: 20090107, end: 20090728
  3. AVASTIN [Suspect]
     Active Substance: BEVACIZUMAB
     Route: 042
  4. TYLENOL [Suspect]
     Active Substance: ACETAMINOPHEN
     Indication: PRODUCT USED FOR UNKNOWN INDICATION
     Route: 065
  5. ATROPINE [Concomitant]
     Active Substance: ATROPINE
     Route: 042
  6. ONDANSETRON HCL [Concomitant]
     Active Substance: ONDANSETRON HYDROCHLORIDE
     Route: 065
     Dates: start: 20081126, end: 20090318
  7. SERTRALINE HCL [Concomitant]
     Active Substance: SERTRALINE HYDROCHLORIDE
     Route: 065
     Dates: start: 20080730, end: 20090408
  8. FIORICET [Concomitant]
     Active Substance: ACETAMINOPHEN\BUTALBITAL\CAFFEINE
     Route: 065
     Dates: start: 20080507, end: 20090218
  9. DIPHENOXYLATE/ATROPINE [Concomitant]
     Active Substance: ATROPINE\DIPHENOXYLATE
     Route: 065
     Dates: start: 20081112, end: 20090218
  10. FENOFIBRATE. [Concomitant]
     Active Substance: FENOFIBRATE
     Route: 065
     Dates: start: 20070720
  11. SERTRALINE HCL [Concomitant]
     Active Substance: SERTRALINE HYDROCHLORIDE
     Route: 065
     Dates: start: 20071017, end: 20080730
  12. IBUPROFEN. [Concomitant]
     Active Substance: IBUPROFEN
     Route: 065
  13. APREPITANT. [Concomitant]
     Active Substance: APREPITANT
     Route: 042
  14. OMEGA 3 ACID ETHYL ESTERS [Concomitant]
     Route: 065
  15. EZETIMIBE. [Concomitant]
     Active Substance: EZETIMIBE
     Route: 048
     Dates: start: 20070820
  16. ATIVAN [Concomitant]
     Active Substance: LORAZEPAM
     Route: 042
  17. APREPITANT. [Concomitant]
     Active Substance: APREPITANT
     Route: 042
     Dates: start: 20081126, end: 20081223
  18. LEVAQUIN [Concomitant]
     Active Substance: LEVOFLOXACIN
     Route: 065
     Dates: start: 20081126, end: 20090121
  19. CARBOPLATIN. [Concomitant]
     Active Substance: CARBOPLATIN
     Route: 042
  20. CAMPTOTHECIN [Concomitant]
     Active Substance: CAMPTOTHECIN
     Route: 065
  21. LEVETIRACETAM. [Concomitant]
     Active Substance: LEVETIRACETAM
     Route: 065
     Dates: start: 20080502, end: 20090121
  22. LAMOTRIGINE. [Concomitant]
     Active Substance: LAMOTRIGINE
     Route: 048
     Dates: start: 20081028, end: 20090218
  23. ALOXI [Concomitant]
     Active Substance: PALONOSETRON HYDROCHLORIDE
     Route: 042
  24. ALPRAZOLAM. [Concomitant]
     Active Substance: ALPRAZOLAM
     Route: 048
     Dates: start: 20081029, end: 20090423
  25. AVASTIN [Suspect]
     Active Substance: BEVACIZUMAB
     Indication: BRAIN NEOPLASM MALIGNANT
     Route: 042
     Dates: start: 20080503, end: 20090923
  26. AVASTIN [Suspect]
     Active Substance: BEVACIZUMAB
     Indication: BRAIN NEOPLASM
     Route: 042
  27. NORCO [Suspect]
     Active Substance: ACETAMINOPHEN\HYDROCODONE BITARTRATE
     Indication: PRODUCT USED FOR UNKNOWN INDICATION
     Route: 065
  28. CANDESARTAN CILEXETIL. [Concomitant]
     Active Substance: CANDESARTAN CILEXETIL
     Route: 065
     Dates: start: 20071017
  29. PHENYTOIN SODIUM, EXTENDED [Concomitant]
     Active Substance: PHENYTOIN SODIUM, EXTENDED
     Route: 065
     Dates: start: 20090204, end: 20090318

REACTIONS (22)
  - Memory impairment [Unknown]
  - Depression [Unknown]
  - Vomiting [Recovered/Resolved]
  - Fatigue [Unknown]
  - Constipation [Unknown]
  - Somnolence [Unknown]
  - Emotional distress [Unknown]
  - Muscle twitching [Unknown]
  - Headache [Recovered/Resolved]
  - Drug ineffective [Unknown]
  - Aphasia [Unknown]
  - Epistaxis [Recovered/Resolved]
  - Tremor [Unknown]
  - Hypoaesthesia oral [Unknown]
  - Abdominal pain [Unknown]
  - Anxiety [Unknown]
  - Haematochezia [Unknown]
  - Seizure [Unknown]
  - Paraesthesia oral [Unknown]
  - Diarrhoea [Recovered/Resolved]
  - Death [Fatal]
  - Nausea [Recovered/Resolved]

NARRATIVE: CASE EVENT DATE: 20080730
